FAERS Safety Report 10878293 (Version 1)
Quarter: 2015Q1

REPORT INFORMATION
  Report Type: Spontaneous
  Country: US (occurrence: None)
  Receive Date: 20150224
  Receipt Date: 20150224
  Transmission Date: 20150721
  Serious: No
  Sender: FDA-Public Use
  Company Number: None

PATIENT
  Age: 62 Year
  Sex: Male
  Weight: 97.52 kg

DRUGS (7)
  1. NORCO [Suspect]
     Active Substance: ACETAMINOPHEN\HYDROCODONE BITARTRATE
     Indication: PROCEDURAL PAIN
     Dosage: 1 PILL 6X/DAY ORAL?APPROXIMATELY 5-6 YEARS
     Route: 048
  2. NORCO [Suspect]
     Active Substance: ACETAMINOPHEN\HYDROCODONE BITARTRATE
     Indication: ARTHRALGIA
     Dosage: 1 PILL 6X/DAY ORAL?APPROXIMATELY 5-6 YEARS
     Route: 048
  3. NORCO [Suspect]
     Active Substance: ACETAMINOPHEN\HYDROCODONE BITARTRATE
     Indication: MENISCUS INJURY
     Dosage: 1 PILL 6X/DAY ORAL?APPROXIMATELY 5-6 YEARS
     Route: 048
  4. NORCO [Suspect]
     Active Substance: ACETAMINOPHEN\HYDROCODONE BITARTRATE
     Indication: MENISCUS REMOVAL
     Dosage: 1 PILL 6X/DAY ORAL?APPROXIMATELY 5-6 YEARS
     Route: 048
  5. LYRICA [Concomitant]
     Active Substance: PREGABALIN
  6. KLONOPIN [Concomitant]
     Active Substance: CLONAZEPAM
  7. SENEKOT S [Concomitant]

REACTIONS (2)
  - Drug ineffective [None]
  - Product substitution issue [None]
